FAERS Safety Report 6931579-3 (Version None)
Quarter: 2010Q3

REPORT INFORMATION
  Report Type: 
  Country: None (occurrence: None)
  Receive Date: 20100819
  Receipt Date: 20100805
  Transmission Date: 20110219
  Serious: Yes (Hospitalization, Other)
  Sender: FDA-Public Use
  Company Number: US-ELI_LILLY_AND_COMPANY-US201007006076

PATIENT
  Sex: Female

DRUGS (8)
  1. FORTEO [Suspect]
     Indication: OSTEOPOROSIS
     Dosage: 20 UG, DAILY (1/D)
     Route: 065
     Dates: start: 20091208
  2. MELOXICAM [Concomitant]
  3. AMLODIPINE [Concomitant]
  4. GEMFIBROZIL [Concomitant]
  5. PRESERVISION LUTEIN EYE VITA.+MIN.SUP.SOFTG. [Concomitant]
  6. OMEPRAZOLE [Concomitant]
     Indication: DYSPEPSIA
  7. RESTORIL [Concomitant]
  8. FLAXSEED OIL [Concomitant]

REACTIONS (3)
  - FALL [None]
  - UPPER-AIRWAY COUGH SYNDROME [None]
  - WRIST FRACTURE [None]
